FAERS Safety Report 5289686-X (Version None)
Quarter: 2007Q2

REPORT INFORMATION
  Report Type: 
  Country: None (occurrence: None)
  Receive Date: 20070406
  Receipt Date: 20070329
  Transmission Date: 20071010
  Serious: Yes (Other)
  Sender: FDA-Public Use
  Company Number: GB-AVENTIS-200712846GDDC

PATIENT
  Sex: Male

DRUGS (4)
  1. LANTUS [Suspect]
  2. NOVOPEN [Concomitant]
  3. INSULIN NOS [Concomitant]
     Dosage: DOSE: UNK
  4. CARDIOVASCULAR SYSTEM DRUGS [Concomitant]
     Dosage: DOSE: UNK

REACTIONS (4)
  - BLOOD GLUCOSE INCREASED [None]
  - CONFUSIONAL STATE [None]
  - INJECTION SITE PAIN [None]
  - MYOCARDIAL INFARCTION [None]
